FAERS Safety Report 5589511-3 (Version None)
Quarter: 2008Q1

REPORT INFORMATION
  Report Type: 
  Country: None (occurrence: None)
  Receive Date: 20080109
  Receipt Date: 20080103
  Transmission Date: 20080703
  Serious: Yes (Hospitalization)
  Sender: FDA-Public Use
  Company Number: GXKR2007ES10735

PATIENT
  Age: 61 Year
  Sex: Female

DRUGS (3)
  1. METFORMIN HCL [Suspect]
     Dosage: 850 MG, BID
  2. IRBESARTAN [Concomitant]
  3. AMLODIPINE [Concomitant]

REACTIONS (10)
  - BLOOD PRESSURE DIASTOLIC DECREASED [None]
  - BRADYPHRENIA [None]
  - DEHYDRATION [None]
  - DIARRHOEA [None]
  - HAEMODIALYSIS [None]
  - LACTIC ACIDOSIS [None]
  - MENTAL DISORDER [None]
  - METABOLIC ACIDOSIS [None]
  - PANCREATITIS ACUTE [None]
  - TACHYPNOEA [None]
